FAERS Safety Report 8244967-2 (Version None)
Quarter: 2012Q1

REPORT INFORMATION
  Report Type: 
  Country: None (occurrence: None)
  Receive Date: 20120329
  Receipt Date: 20111024
  Transmission Date: 20120608
  Serious: No
  Sender: FDA-Public Use
  Company Number: US-MYLANLABS-2011S1022154

PATIENT
  Age: 46 Year
  Sex: Male

DRUGS (2)
  1. FENTANYL-100 [Suspect]
     Indication: BACK PAIN
     Dosage: Q48H
     Route: 062
     Dates: start: 20100101
  2. OXYMORPHONE [Concomitant]
     Indication: BACK PAIN
     Dates: start: 20100101

REACTIONS (5)
  - DRUG EFFECT DECREASED [None]
  - BACK PAIN [None]
  - APPLICATION SITE RASH [None]
  - APPLICATION SITE PAPULES [None]
  - APPLICATION SITE BLEEDING [None]
